FAERS Safety Report 4331330-X (Version None)
Quarter: 2004Q1

REPORT INFORMATION
  Report Type: 
  Country: None (occurrence: None)
  Receive Date: 20040329
  Receipt Date: 20040312
  Transmission Date: 20041129
  Serious: Yes (Hospitalization)
  Sender: FDA-Public Use
  Company Number: 194103

PATIENT
  Age: 81 Year
  Sex: Female
  Weight: 53.5244 kg

DRUGS (8)
  1. AVONEX [Suspect]
     Indication: MULTIPLE SCLEROSIS
     Dosage: 30 MC QW IM
     Route: 030
     Dates: start: 20020401, end: 20031101
  2. AVONEX [Suspect]
     Indication: MULTIPLE SCLEROSIS
     Dosage: 30 MCG QW IM
     Route: 030
     Dates: start: 20031101
  3. TIZANIDINE HCL [Concomitant]
  4. KEPPRA [Concomitant]
  5. AMITTRIPTYLINE [Concomitant]
  6. PREVACID [Concomitant]
  7. BACLOFEN [Concomitant]
  8. DIOVAN [Concomitant]

REACTIONS (4)
  - FALL [None]
  - FEMUR FRACTURE [None]
  - MICTURITION URGENCY [None]
  - MULTIPLE SCLEROSIS [None]
